FAERS Safety Report 9557930 (Version 1)
Quarter: 2013Q3

REPORT INFORMATION
  Report Type: Spontaneous
  Country: CN (occurrence: CN)
  Receive Date: 20130926
  Receipt Date: 20130926
  Transmission Date: 20140515
  Serious: Yes (Hospitalization)
  Sender: FDA-Public Use
  Company Number: CN-BRISTOL-MYERS SQUIBB COMPANY-19422740

PATIENT
  Age: 25 Year
  Sex: Female
  Weight: 41 kg

DRUGS (1)
  1. ABILIFY TABS [Suspect]
     Indication: BIPOLAR II DISORDER
     Route: 048
     Dates: start: 20110706, end: 20110727

REACTIONS (1)
  - Dysphoria [Recovered/Resolved]
